FAERS Safety Report 8605353-6 (Version None)
Quarter: 2012Q3

REPORT INFORMATION
  Report Type: 
  Country: None (occurrence: None)
  Receive Date: 20120820
  Receipt Date: 20120815
  Transmission Date: 20120928
  Serious: Yes (Death, Other)
  Sender: FDA-Public Use
  Company Number: GB-ASTRAZENECA-2012SE57633

PATIENT
  Sex: Male

DRUGS (3)
  1. DEPAKOTE [Suspect]
     Route: 048
  2. FLUOXETINE HCL [Suspect]
     Route: 048
  3. SEROQUEL [Suspect]
     Route: 048

REACTIONS (2)
  - CHEST PAIN [None]
  - SUDDEN CARDIAC DEATH [None]
